FAERS Safety Report 6825900-4 (Version None)
Quarter: 2010Q3

REPORT INFORMATION
  Report Type: 
  Country: None (occurrence: None)
  Receive Date: 20100709
  Receipt Date: 20100301
  Transmission Date: 20110219
  Serious: Yes (Hospitalization, Other)
  Sender: FDA-Public Use
  Company Number: US-ASTRAZENECA-2010SE31531

PATIENT
  Age: 11653 Day
  Sex: Female

DRUGS (4)
  1. SEROQUEL [Suspect]
     Dosage: 200 MG 1 TAB AT QAM THEN 1 TAB AT 6PM QD AND 1 TAB AT QHS
     Route: 048
     Dates: start: 20030225
  2. BUPROPRION SR [Concomitant]
     Dates: start: 20060107
  3. LIPITOR [Concomitant]
     Dates: start: 20060107
  4. TOPAMAX [Concomitant]
     Dates: start: 20060107

REACTIONS (11)
  - ASTHMA [None]
  - DEPRESSION [None]
  - GASTROOESOPHAGEAL REFLUX DISEASE [None]
  - HYPERLIPIDAEMIA [None]
  - MAJOR DEPRESSION [None]
  - MIGRAINE [None]
  - OBESITY [None]
  - SCHIZOAFFECTIVE DISORDER [None]
  - SUICIDAL IDEATION [None]
  - TACHYCARDIA [None]
  - TYPE 2 DIABETES MELLITUS [None]
